FAERS Safety Report 6333469-6 (Version None)
Quarter: 2009Q3

REPORT INFORMATION
  Report Type: 
  Country: None (occurrence: None)
  Receive Date: 20090828
  Receipt Date: 20090820
  Transmission Date: 20100115
  Serious: Yes (Other)
  Sender: FDA-Public Use
  Company Number: PHHY2009BR35043

PATIENT
  Age: 83 Year
  Sex: Female
  Weight: 48 kg

DRUGS (7)
  1. EXELON [Suspect]
     Indication: MEMORY IMPAIRMENT
     Dosage: 4.5 MG, BID
     Dates: start: 20030101
  2. PLAVIX [Concomitant]
  3. CLOPIDOGREL [Concomitant]
     Indication: THROMBOSIS PROPHYLAXIS
     Dosage: 75MG 1 TABLET AT LUNCH
  4. LIPITOR [Concomitant]
     Indication: BLOOD CHOLESTEROL
     Dosage: 1 TABLET 3 TIMES PER WEEK
  5. PURAN T4 [Concomitant]
     Indication: THYROID DISORDER
     Dosage: 88MCG 1 TABLET DAILY
  6. VITAMINS [Concomitant]
  7. ESINOL [Concomitant]
     Dosage: 1 TABLET DAILY

REACTIONS (6)
  - ABNORMAL BEHAVIOUR [None]
  - FALL [None]
  - FEMUR FRACTURE [None]
  - JOINT INJURY [None]
  - MEMORY IMPAIRMENT [None]
  - SURGERY [None]
